FAERS Safety Report 24192821 (Version 1)
Quarter: 2024Q3

REPORT INFORMATION
  Report Type: Report from Study
  Country: US (occurrence: None)
  Receive Date: 20240809
  Receipt Date: 20240809
  Transmission Date: 20241017
  Serious: Yes (Hospitalization, Other)
  Sender: ASTRAZENECA
  Company Number: 2024A177644

PATIENT
  Sex: Female
  Weight: 59 kg

DRUGS (3)
  1. TAGRISSO [Suspect]
     Active Substance: OSIMERTINIB
     Indication: Lung neoplasm malignant
     Route: 048
     Dates: start: 20200508, end: 202310
  2. TAGRISSO [Suspect]
     Active Substance: OSIMERTINIB
     Indication: Lung neoplasm malignant
     Route: 048
     Dates: start: 202407
  3. LEVOTHYROXINE [Concomitant]
     Active Substance: LEVOTHYROXINE\LEVOTHYROXINE SODIUM

REACTIONS (7)
  - Cataract [Unknown]
  - Dehydration [Unknown]
  - Drug hypersensitivity [Unknown]
  - Nausea [Unknown]
  - Feeding disorder [Unknown]
  - Weight decreased [Unknown]
  - Blood calcium [Unknown]
